FAERS Safety Report 9237048 (Version 9)
Quarter: 2015Q3

REPORT INFORMATION
  Report Type: Spontaneous
  Country: US (occurrence: US)
  Receive Date: 20130417
  Receipt Date: 20150803
  Transmission Date: 20151125
  Serious: Yes (Disabling, Other)
  Sender: FDA-Public Use
  Company Number: US-009507513-1304USA008315

PATIENT
  Sex: Male
  Weight: 65.31 kg

DRUGS (5)
  1. PROPECIA [Suspect]
     Active Substance: FINASTERIDE
     Indication: ANDROGENETIC ALOPECIA
  2. FINASTERIDE. [Suspect]
     Active Substance: FINASTERIDE
     Indication: ANDROGENETIC ALOPECIA
  3. PROPECIA [Suspect]
     Active Substance: FINASTERIDE
     Indication: ALOPECIA
     Dosage: 1 MG, QD
     Route: 048
     Dates: start: 199910, end: 20070426
  4. FINASTERIDE. [Suspect]
     Active Substance: FINASTERIDE
     Indication: ALOPECIA
     Dosage: 1 MG, UNK
     Route: 048
     Dates: start: 200602, end: 201005
  5. ROGAINE [Concomitant]
     Active Substance: MINOXIDIL
     Indication: ALOPECIA
     Route: 061

REACTIONS (69)
  - Chronic fatigue syndrome [Not Recovered/Not Resolved]
  - Feeling abnormal [Not Recovered/Not Resolved]
  - Muscular weakness [Unknown]
  - Malaise [Recovering/Resolving]
  - Asthenia [Unknown]
  - Testicular failure [Unknown]
  - Pollakiuria [Unknown]
  - Proctalgia [Recovered/Resolved]
  - Urinary retention [Unknown]
  - Depression [Not Recovered/Not Resolved]
  - Fatigue [Recovering/Resolving]
  - Testicular torsion [Unknown]
  - Orchidopexy [Unknown]
  - Nervous system disorder [Unknown]
  - Palpitations [Unknown]
  - Insomnia [Not Recovered/Not Resolved]
  - Loss of consciousness [Recovered/Resolved]
  - Varicocele [Unknown]
  - Epididymal cyst [Unknown]
  - Inguinal hernia repair [Unknown]
  - Affective disorder [Unknown]
  - Ear infection [Unknown]
  - Ejaculation delayed [Unknown]
  - Depression [Unknown]
  - Lead urine increased [Unknown]
  - Hyperpituitarism [Unknown]
  - Deafness [Unknown]
  - Infectious mononucleosis [Recovered/Resolved with Sequelae]
  - Blood elastase increased [Unknown]
  - Disturbance in attention [Unknown]
  - Dysuria [Unknown]
  - Inguinal hernia [Unknown]
  - Muscle tightness [Unknown]
  - Neck pain [Not Recovered/Not Resolved]
  - Erectile dysfunction [Unknown]
  - Testicular pain [Unknown]
  - Presyncope [Unknown]
  - Enzyme level increased [Unknown]
  - Pain [Unknown]
  - Galactorrhoea [Recovered/Resolved]
  - Mitochondrial myopathy [Unknown]
  - Anxiety [Not Recovered/Not Resolved]
  - Back pain [Unknown]
  - Libido decreased [Recovering/Resolving]
  - Cerebral disorder [Unknown]
  - Stress [Not Recovered/Not Resolved]
  - Male orgasmic disorder [Unknown]
  - Sleep disorder [Unknown]
  - Drug intolerance [Unknown]
  - Hypogonadism [Unknown]
  - Rosacea [Unknown]
  - Cognitive disorder [Not Recovered/Not Resolved]
  - Blood luteinising hormone increased [Unknown]
  - Amnesia [Not Recovered/Not Resolved]
  - Oropharyngeal pain [Unknown]
  - Lymphadenopathy [Unknown]
  - Headache [Unknown]
  - Gastrointestinal disorder [Unknown]
  - Carnitine deficiency [Unknown]
  - Pelvic pain [Not Recovered/Not Resolved]
  - Sexual dysfunction [Not Recovered/Not Resolved]
  - Glycogen storage disorder [Unknown]
  - Anxiety [Not Recovered/Not Resolved]
  - Temporomandibular joint syndrome [Unknown]
  - Dizziness [Recovering/Resolving]
  - Irritability [Unknown]
  - Hypothalamo-pituitary disorder [Unknown]
  - Drug ineffective [Unknown]
  - Mitochondrial myopathy acquired [Unknown]

NARRATIVE: CASE EVENT DATE: 2000
